FAERS Safety Report 5638790-2 (Version None)
Quarter: 2008Q1

REPORT INFORMATION
  Report Type: 
  Country: None (occurrence: None)
  Receive Date: 20080226
  Receipt Date: 20080213
  Transmission Date: 20080703
  Serious: Yes (Hospitalization)
  Sender: FDA-Public Use
  Company Number: FR-JNJFOC-20080205358

PATIENT
  Sex: Male

DRUGS (10)
  1. IXPRIM [Suspect]
     Dosage: 325/37.5MG  1-2 TABLETS DAILY
     Route: 048
  2. IXPRIM [Suspect]
     Indication: SCIATICA
     Route: 048
  3. INIPOMP [Suspect]
     Indication: GASTROOESOPHAGEAL REFLUX DISEASE
     Dosage: DURATION: SEVERAL YEARS
     Route: 065
  4. SIMVASTATIN [Suspect]
     Indication: HYPERCHOLESTEROLAEMIA
     Dosage: (15 YEARS)  HALF A TABLET
     Route: 048
  5. METFORMIN HCL [Suspect]
     Route: 048
  6. METFORMIN HCL [Suspect]
     Indication: TYPE 2 DIABETES MELLITUS
     Route: 048
  7. VOLTAREN [Concomitant]
     Route: 065
  8. STRUCTUM [Concomitant]
     Indication: OSTEOARTHRITIS
     Route: 065
  9. ACETAMINOPHEN [Concomitant]
     Route: 065
  10. GAVISCON [Concomitant]
     Route: 065

REACTIONS (2)
  - HEPATIC ENZYME INCREASED [None]
  - PANCREATITIS ACUTE [None]
